FAERS Safety Report 8057633-3 (Version None)
Quarter: 2012Q1

REPORT INFORMATION
  Report Type: 
  Country: None (occurrence: None)
  Receive Date: 20120120
  Receipt Date: 20120111
  Transmission Date: 20120608
  Serious: No
  Sender: FDA-Public Use
  Company Number: US-BIOGENIDEC-2011BI040380

PATIENT
  Age: 41 Year
  Sex: Male

DRUGS (2)
  1. TYSABRI [Suspect]
     Indication: MULTIPLE SCLEROSIS
     Route: 042
     Dates: start: 20110921
  2. PREDNISONE TAB [Concomitant]
     Indication: PREMEDICATION

REACTIONS (3)
  - NEUROPATHY PERIPHERAL [None]
  - PALPITATIONS [None]
  - HEADACHE [None]
